FAERS Safety Report 21935935 (Version 1)
Quarter: 2023Q1

REPORT INFORMATION
  Report Type: Report from Study
  Country: US (occurrence: US)
  Receive Date: 20230201
  Receipt Date: 20230201
  Transmission Date: 20230418
  Serious: No
  Sender: FDA-Public Use
  Company Number: US-BIOVITRUM-2023US01645

PATIENT
  Age: 0 Year
  Sex: Female

DRUGS (3)
  1. SYNAGIS [Suspect]
     Active Substance: PALIVIZUMAB
     Indication: Antiviral prophylaxis
  2. LACTULOSE [Concomitant]
     Active Substance: LACTULOSE
  3. IRON\VITAMINS [Concomitant]
     Active Substance: IRON\VITAMINS

REACTIONS (2)
  - Cough [Unknown]
  - Drug effect less than expected [Unknown]

NARRATIVE: CASE EVENT DATE: 20230127
